FAERS Safety Report 7729193-5 (Version None)
Quarter: 2011Q3

REPORT INFORMATION
  Report Type: 
  Country: None (occurrence: None)
  Receive Date: 20110906
  Receipt Date: 20110829
  Transmission Date: 20111222
  Serious: Yes (Other)
  Sender: FDA-Public Use
  Company Number: US-JNJFOC-20110900475

PATIENT
  Sex: Female
  Weight: 65.77 kg

DRUGS (2)
  1. PREDNISONE [Suspect]
     Indication: PRODUCT USED FOR UNKNOWN INDICATION
     Route: 048
     Dates: start: 20110301, end: 20110101
  2. LEVAQUIN [Suspect]
     Indication: SINUSITIS
     Route: 048
     Dates: start: 20110301, end: 20110301

REACTIONS (7)
  - LIGAMENT DISORDER [None]
  - JOINT SWELLING [None]
  - MYALGIA [None]
  - ARTHRALGIA [None]
  - WEIGHT INCREASED [None]
  - CARPAL TUNNEL SYNDROME [None]
  - PLANTAR FASCIITIS [None]
